FAERS Safety Report 5574942-8 (Version None)
Quarter: 2007Q4

REPORT INFORMATION
  Report Type: 
  Country: None (occurrence: None)
  Receive Date: 20071227
  Receipt Date: 20071220
  Transmission Date: 20080405
  Serious: Yes (Hospitalization)
  Sender: FDA-Public Use
  Company Number: A0700611A

PATIENT
  Age: 46 Year
  Sex: Female
  Weight: 66 kg

DRUGS (1)
  1. AUGMENTIN '125' [Suspect]
     Indication: PHARYNGOLARYNGEAL PAIN
     Dosage: 875MG SINGLE DOSE
     Route: 065
     Dates: start: 20071211, end: 20071211

REACTIONS (7)
  - CHILLS [None]
  - HYPERSENSITIVITY [None]
  - PRURITUS [None]
  - SELF-MEDICATION [None]
  - SWELLING [None]
  - SYNCOPE [None]
  - VOMITING [None]
